FAERS Safety Report 14488417 (Version 2)
Quarter: 2019Q1

REPORT INFORMATION
  Report Type: Spontaneous
  Country: CA (occurrence: CA)
  Receive Date: 20180205
  Receipt Date: 20190204
  Transmission Date: 20190417
  Serious: Yes (Other)
  Sender: FDA-Public Use
  Company Number: CA-SA-2017SA166729

PATIENT
  Age: 47 Year
  Sex: Female

DRUGS (12)
  1. ANAKINRA [Suspect]
     Active Substance: ANAKINRA
     Dosage: UNK UNK,UNK
     Route: 065
  2. RITUXAN [Suspect]
     Active Substance: RITUXIMAB
     Dosage: UNK UNK,UNK
     Route: 065
     Dates: start: 2011
  3. ANAKINRA [Suspect]
     Active Substance: ANAKINRA
     Dosage: UNK UNK,UNK
     Route: 065
     Dates: start: 1999
  4. ENBREL [Suspect]
     Active Substance: ETANERCEPT
     Indication: RHEUMATOID ARTHRITIS
     Dosage: UNK UNK,UNK
     Route: 065
  5. FENTANYL. [Concomitant]
     Active Substance: FENTANYL
     Indication: PAIN
     Dosage: 125 UG,UNK
     Route: 065
  6. ACTEMRA [Suspect]
     Active Substance: TOCILIZUMAB
     Indication: RHEUMATOID ARTHRITIS
     Dosage: UNK UNK,UNK
     Route: 065
     Dates: end: 201604
  7. ORENCIA [Suspect]
     Active Substance: ABATACEPT
     Dosage: UNK UNK,UNK
     Route: 065
     Dates: start: 2010
  8. REMICADE [Suspect]
     Active Substance: INFLIXIMAB
     Dosage: UNK UNK,UNK
     Route: 042
  9. LEFLUNOMIDE. [Suspect]
     Active Substance: LEFLUNOMIDE
     Dosage: 20 MG,QD
     Route: 048
     Dates: start: 1999, end: 1999
  10. METHOTREXATE. [Suspect]
     Active Substance: METHOTREXATE
     Indication: RHEUMATOID ARTHRITIS
     Dosage: 25 MG,QW
     Route: 048
     Dates: start: 1999
  11. HUMIRA [Suspect]
     Active Substance: ADALIMUMAB
     Dosage: UNK UNK,UNK
     Route: 058
  12. METHOTREXATE. [Suspect]
     Active Substance: METHOTREXATE
     Dosage: 15 MG,QW
     Route: 048

REACTIONS (10)
  - Drug ineffective [Unknown]
  - Joint swelling [Unknown]
  - Back pain [Unknown]
  - Infection [Unknown]
  - Musculoskeletal pain [Unknown]
  - Swelling [Unknown]
  - Dyspnoea [Unknown]
  - Osteomyelitis [Unknown]
  - Sensitivity to weather change [Unknown]
  - Liver function test increased [Unknown]

NARRATIVE: CASE EVENT DATE: 20160616
